FAERS Safety Report 7772931-6 (Version None)
Quarter: 2011Q3

REPORT INFORMATION
  Report Type: 
  Country: None (occurrence: None)
  Receive Date: 20110922
  Receipt Date: 20110526
  Transmission Date: 20111222
  Serious: No
  Sender: FDA-Public Use
  Company Number: US-ASTRAZENECA-2011SE32787

PATIENT
  Age: 55 Year
  Sex: Male
  Weight: 71.7 kg

DRUGS (4)
  1. VITAMIN B COMPLEX CAP [Concomitant]
     Route: 048
  2. SEROQUEL [Suspect]
     Indication: OFF LABEL USE
     Route: 048
     Dates: start: 20101101
  3. FISH OIL [Concomitant]
     Route: 048
  4. VITAMINS D [Concomitant]
     Route: 048

REACTIONS (2)
  - OFF LABEL USE [None]
  - DYSKINESIA [None]
